FAERS Safety Report 7564064-9 (Version None)
Quarter: 2011Q2

REPORT INFORMATION
  Report Type: 
  Country: None (occurrence: None)
  Receive Date: 20110622
  Receipt Date: 20110613
  Transmission Date: 20111010
  Serious: Yes (Other)
  Sender: FDA-Public Use
  Company Number: JP-UCBSA-032709

PATIENT
  Sex: Female

DRUGS (1)
  1. XYZAL [Suspect]
     Indication: PRURITUS
     Dosage: UNKNOWN DOSE
     Route: 048
     Dates: start: 20110506, end: 20110509

REACTIONS (4)
  - ANGIOEDEMA [None]
  - HEADACHE [None]
  - OEDEMA [None]
  - MALAISE [None]
